FAERS Safety Report 7953026-5 (Version None)
Quarter: 2011Q4

REPORT INFORMATION
  Report Type: 
  Country: None (occurrence: None)
  Receive Date: 20111201
  Receipt Date: 20111130
  Transmission Date: 20120403
  Serious: Yes (Life-Threatening, Hospitalization)
  Sender: FDA-Public Use
  Company Number: DE-PFIZER INC-2011032241

PATIENT
  Age: 38 Year
  Sex: Male
  Weight: 95 kg

DRUGS (3)
  1. SIMVASTATIN [Concomitant]
     Indication: HYPERLIPIDAEMIA
     Dosage: 20 MG, 1X/DAY
     Route: 048
     Dates: start: 20100701
  2. RAMIPRIL [Suspect]
     Indication: HYPERTENSION
     Dosage: 10 MG, 1X/DAY
     Route: 048
     Dates: start: 20101001, end: 20101208
  3. PANTOPRAZOLE SODIUM [Concomitant]
     Indication: PROPHYLAXIS AGAINST GASTROINTESTINAL ULCER
     Dosage: 40 MG, 1X/DAY
     Route: 048
     Dates: start: 20100701

REACTIONS (9)
  - DYSPHAGIA [None]
  - C-REACTIVE PROTEIN INCREASED [None]
  - PHARYNGEAL OEDEMA [None]
  - LIPASE INCREASED [None]
  - LIVER FUNCTION TEST ABNORMAL [None]
  - BLOOD COUNT ABNORMAL [None]
  - ANGIOEDEMA [None]
  - BLOOD POTASSIUM DECREASED [None]
  - DYSPNOEA [None]
